FAERS Safety Report 17495579 (Version 1)
Quarter: 2020Q1

REPORT INFORMATION
  Report Type: Spontaneous
  Country: US (occurrence: US)
  Receive Date: 20200304
  Receipt Date: 20200304
  Transmission Date: 20200409
  Serious: Yes (Other)
  Sender: FDA-Public Use
  Company Number: None

PATIENT
  Age: 70 Year
  Sex: Male
  Weight: 84.6 kg

DRUGS (7)
  1. ALLERGY MEDICINE [Concomitant]
     Active Substance: DIPHENHYDRAMINE HYDROCHLORIDE
  2. CHOLESTEROL [Concomitant]
     Active Substance: CHOLESTEROL
  3. HYDROCODONE [Concomitant]
     Active Substance: HYDROCODONE
  4. TRIGLYCERIDE [Concomitant]
  5. ANTI NAUSEA MED [Concomitant]
     Active Substance: UNSPECIFIED INGREDIENT
  6. TRULICITY [Suspect]
     Active Substance: DULAGLUTIDE
     Indication: TYPE 2 DIABETES MELLITUS
     Dosage: ?          QUANTITY:1 INJECTION(S);?
     Dates: start: 20200222
  7. BLOOD PRESSURE [Concomitant]

REACTIONS (3)
  - Product prescribing issue [None]
  - Blood glucose increased [None]
  - Diarrhoea [None]

NARRATIVE: CASE EVENT DATE: 20200222
